FAERS Safety Report 7438070-9 (Version None)
Quarter: 2011Q2

REPORT INFORMATION
  Report Type: 
  Country: None (occurrence: None)
  Receive Date: 20110426
  Receipt Date: 20110415
  Transmission Date: 20111010
  Serious: Yes (Death, Hospitalization, Other)
  Sender: FDA-Public Use
  Company Number: US-CELGENEUS-163-21880-11013032

PATIENT
  Sex: Female

DRUGS (32)
  1. DEXAMETHASONE [Concomitant]
     Dosage: 5
     Route: 048
  2. ANTIBIOTICS [Concomitant]
     Route: 065
  3. HYDROMORPHONE [Concomitant]
     Dosage: 2MG/1ML
     Route: 051
     Dates: start: 20110122
  4. HYOSCYAMINE [Concomitant]
     Dosage: 0.125MG/1SUBL
     Route: 060
     Dates: start: 20110120
  5. NOREPINEPHRINE BITARTRATE [Concomitant]
     Dosage: 8 MILLIGRAM
     Route: 051
     Dates: start: 20110122, end: 20110123
  6. DILTIAZEM [Concomitant]
     Dosage: 125 MILLIGRAM
     Route: 065
     Dates: start: 20110122, end: 20110123
  7. HEPARIN [Concomitant]
     Route: 065
  8. AMIODARONE [Concomitant]
     Dosage: 900 MILLIGRAM
     Route: 051
     Dates: start: 20110122, end: 20110123
  9. NOREPINEPHRINE BITARTRATE [Concomitant]
     Dosage: 4 MILLIGRAM
     Route: 051
     Dates: start: 20110119, end: 20110122
  10. PHENYLEPHRINE HCL [Concomitant]
     Dosage: 40 MILLIGRAM
     Route: 051
     Dates: start: 20110122, end: 20110123
  11. NEXIUM [Concomitant]
     Route: 065
  12. TORADOL [Concomitant]
     Route: 065
  13. MAGNESIUM [Concomitant]
     Dosage: 2G/50ML
     Route: 051
     Dates: start: 20110122
  14. ONDANSETRON [Concomitant]
     Dosage: 4MG/2ML
     Route: 051
     Dates: start: 20110119
  15. SODIUM BICARBONATE [Concomitant]
     Dosage: 150MEQ/150ML
     Route: 051
     Dates: start: 20110121
  16. PROPOFOL [Concomitant]
     Route: 065
     Dates: start: 20110122, end: 20110123
  17. REVLIMID [Suspect]
     Indication: MULTIPLE MYELOMA
     Dosage: 10 MILLIGRAM
     Route: 048
     Dates: start: 20101103
  18. LYRICA [Concomitant]
     Route: 065
  19. PLAVIX [Concomitant]
     Route: 065
  20. CRESTOR [Concomitant]
     Route: 065
  21. FENTANYL [Concomitant]
     Route: 065
  22. REGLAN [Concomitant]
     Dosage: 10MG/2ML
     Route: 051
     Dates: start: 20110120
  23. AMIODARONE [Concomitant]
     Dosage: 900 MILLIGRAM
     Route: 051
     Dates: start: 20110122, end: 20110122
  24. DOPAMINE HCL [Concomitant]
     Dosage: 800MG/250ML
     Route: 065
     Dates: start: 20110122, end: 20110123
  25. CIPROFLOXACIN [Concomitant]
     Route: 065
  26. MAGNESIUM [Concomitant]
     Dosage: 1G/50ML
     Route: 051
     Dates: start: 20110119
  27. MEROPENEM [Concomitant]
     Dosage: 500MG/50ML
     Route: 051
     Dates: start: 20110122
  28. SODIUM BICARBONATE [Concomitant]
     Dosage: 200MEQ/200ML
     Route: 051
     Dates: start: 20110122, end: 20110123
  29. VANCOMYCIN [Concomitant]
     Dosage: 250MG/0.5 SOLR
     Route: 048
     Dates: start: 20110122
  30. PIPERACILLIN-TAZO [Concomitant]
     Dosage: 2.25G/50ML
     Route: 051
     Dates: start: 20110119
  31. PHENYLEPHRINE HCL [Concomitant]
     Dosage: 20 MILLIGRAM
     Route: 051
     Dates: start: 20110122, end: 20110122
  32. SODIUM CHLORIDE [Concomitant]
     Dosage: 100ML
     Route: 065
     Dates: start: 20110122, end: 20110123

REACTIONS (6)
  - RENAL FAILURE ACUTE [None]
  - DEHYDRATION [None]
  - COLITIS [None]
  - DIARRHOEA [None]
  - DIVERTICULITIS [None]
  - SHOCK [None]
